FAERS Safety Report 6035257-7 (Version None)
Quarter: 2009Q1

REPORT INFORMATION
  Report Type: 
  Country: None (occurrence: None)
  Receive Date: 20090109
  Receipt Date: 20081230
  Transmission Date: 20090719
  Serious: Yes (Hospitalization)
  Sender: FDA-Public Use
  Company Number: 233381K08USA

PATIENT
  Age: 49 Year
  Sex: Female

DRUGS (4)
  1. REBIF [Suspect]
     Indication: MULTIPLE SCLEROSIS
     Dosage: 44 MCG, 3 IN 1 WEEKS, SUBCUTANEOUS
     Route: 058
     Dates: start: 20080723
  2. LISINOPRIL [Concomitant]
  3. ACIPHEX [Concomitant]
  4. VITAMIN D [Concomitant]

REACTIONS (17)
  - ASTHENIA [None]
  - BACK PAIN [None]
  - EATING DISORDER [None]
  - FEELING ABNORMAL [None]
  - HYPERTENSION [None]
  - INFUSION SITE EXTRAVASATION [None]
  - INJECTION SITE IRRITATION [None]
  - INJECTION SITE PAIN [None]
  - KETOACIDOSIS [None]
  - MALAISE [None]
  - MUSCULAR WEAKNESS [None]
  - NEURALGIA [None]
  - PAIN [None]
  - PAIN IN EXTREMITY [None]
  - STAPHYLOCOCCAL INFECTION [None]
  - STREPTOCOCCAL INFECTION [None]
  - TREATMENT NONCOMPLIANCE [None]
